FAERS Safety Report 24993629 (Version 1)
Quarter: 2025Q1

REPORT INFORMATION
  Report Type: Spontaneous
  Country: GB (occurrence: GB)
  Receive Date: 20250221
  Receipt Date: 20250221
  Transmission Date: 20250409
  Serious: Yes (Disabling, Other)
  Sender: EXELIXIS
  Company Number: GB-IPSEN Group, Research and Development-2024-13131

PATIENT
  Age: 21 Year
  Sex: Female
  Weight: 54.8 kg

DRUGS (7)
  1. CABOMETYX [Suspect]
     Active Substance: CABOZANTINIB S-MALATE
     Indication: Osteosarcoma
     Dosage: 60 MG, QD
     Route: 048
     Dates: start: 20240626, end: 20240812
  2. CABOMETYX [Suspect]
     Active Substance: CABOZANTINIB S-MALATE
     Indication: Off label use
     Dosage: 40 MG, QD
     Route: 048
     Dates: start: 20240813, end: 20241218
  3. CABOMETYX [Suspect]
     Active Substance: CABOZANTINIB S-MALATE
     Dosage: 40 MG, QOD (ALTERNATE DAY )
     Route: 048
     Dates: start: 20250123
  4. APIXABAN [Concomitant]
     Active Substance: APIXABAN
     Indication: Deep vein thrombosis
     Dates: start: 20231229
  5. APIXABAN [Concomitant]
     Active Substance: APIXABAN
     Dosage: TWICE A DAY. ONGOING
     Dates: start: 20240605
  6. SENNA [Concomitant]
     Active Substance: SENNOSIDES
     Indication: Constipation
     Dates: start: 20240621
  7. LEVOTHYROXINE [Concomitant]
     Active Substance: LEVOTHYROXINE
     Indication: Hypothyroid cardiomyopathy

REACTIONS (7)
  - Lower respiratory tract infection [Recovered/Resolved]
  - Pneumothorax [Recovered/Resolved with Sequelae]
  - Decreased appetite [Not Recovered/Not Resolved]
  - Palmar-plantar erythrodysaesthesia syndrome [Not Recovered/Not Resolved]
  - Mucosal inflammation [Not Recovered/Not Resolved]
  - Off label use [Unknown]
  - Off label use [Unknown]

NARRATIVE: CASE EVENT DATE: 20240626
